FAERS Safety Report 10593754 (Version 1)
Quarter: 2014Q4

REPORT INFORMATION
  Report Type: Spontaneous
  Country: US (occurrence: US)
  Receive Date: 20141119
  Receipt Date: 20141119
  Transmission Date: 20150529
  Serious: No
  Sender: FDA-Public Use
  Company Number: US-PFIZER INC-2014315579

PATIENT
  Sex: Male

DRUGS (2)
  1. TIKOSYN [Suspect]
     Active Substance: DOFETILIDE
     Dosage: UNK
  2. COREG [Suspect]
     Active Substance: CARVEDILOL
     Dosage: UNK

REACTIONS (2)
  - Dyspnoea [Unknown]
  - Chest discomfort [Unknown]
